FAERS Safety Report 10421501 (Version 1)
Quarter: 2014Q3

REPORT INFORMATION
  Report Type: Report from Study
  Country: US (occurrence: US)
  Receive Date: 20140901
  Receipt Date: 20140901
  Transmission Date: 20150326
  Serious: Yes (Other)
  Sender: FDA-Public Use
  Company Number: US-ROCHE-1455436

PATIENT
  Age: 68 Year
  Sex: Female
  Weight: 59.02 kg

DRUGS (3)
  1. CHEMO ADMINISTERED REGIMEN UNKNOWN [Concomitant]
  2. DECADRON [Concomitant]
     Active Substance: DEXAMETHASONE
  3. TRASTUZUMAB EMTANSINE [Suspect]
     Active Substance: ADO-TRASTUZUMAB EMTANSINE
     Indication: BREAST CANCER
     Dosage: 75%
     Route: 042
     Dates: start: 20140613

REACTIONS (12)
  - Cough [Unknown]
  - Dyspnoea [Unknown]
  - Liver function test abnormal [Recovering/Resolving]
  - Feeling cold [Unknown]
  - Fatigue [Unknown]
  - Erythema [Unknown]
  - Chest pain [Unknown]
  - Asthenia [Unknown]
  - Weight decreased [Not Recovered/Not Resolved]
  - Wound haemorrhage [Recovered/Resolved]
  - Oral mucosal blistering [Not Recovered/Not Resolved]
  - Chills [Unknown]

NARRATIVE: CASE EVENT DATE: 20140614
